FAERS Safety Report 7393765-0 (Version None)
Quarter: 2011Q1

REPORT INFORMATION
  Report Type: 
  Country: None (occurrence: None)
  Receive Date: 20110330
  Receipt Date: 20110330
  Transmission Date: 20110831
  Serious: Yes (Other)
  Sender: FDA-Public Use
  Company Number: None

PATIENT
  Sex: Female
  Weight: 49.8957 kg

DRUGS (1)
  1. ACTONEL [Suspect]
     Indication: OSTEOPENIA
     Dosage: 35 MG WEEKLY PO
     Route: 048
     Dates: start: 19980101, end: 20101113

REACTIONS (3)
  - MUSCULOSKELETAL PAIN [None]
  - SUICIDAL IDEATION [None]
  - ACTIVITIES OF DAILY LIVING IMPAIRED [None]
